FAERS Safety Report 13579012 (Version 4)
Quarter: 2017Q2

REPORT INFORMATION
  Report Type: Spontaneous
  Country: US (occurrence: US)
  Receive Date: 20170524
  Receipt Date: 20170609
  Transmission Date: 20170830
  Serious: No
  Sender: FDA-Public Use
  Company Number: US-JAZZ-2017-US-005553

PATIENT
  Age: 12 Year
  Sex: Female

DRUGS (3)
  1. XYREM [Suspect]
     Active Substance: SODIUM OXYBATE
     Indication: CATAPLEXY
     Dosage: 2.25G, BID
     Route: 048
     Dates: start: 2017, end: 2017
  2. XYREM [Suspect]
     Active Substance: SODIUM OXYBATE
     Indication: CATAPLEXY
     Dosage: 4.5G, BID
     Route: 048
     Dates: start: 201705, end: 2017
  3. XYREM [Suspect]
     Active Substance: SODIUM OXYBATE
     Dosage: 3.25G, BID
     Route: 048
     Dates: start: 2017

REACTIONS (10)
  - Viral upper respiratory tract infection [Not Recovered/Not Resolved]
  - Tremor [Recovering/Resolving]
  - Abnormal sleep-related event [Recovering/Resolving]
  - Nausea [Not Recovered/Not Resolved]
  - Decreased appetite [Unknown]
  - Headache [Recovering/Resolving]
  - Polymenorrhoea [Unknown]
  - Sedation [Unknown]
  - Musculoskeletal pain [Unknown]
  - Hypersensitivity [Not Recovered/Not Resolved]

NARRATIVE: CASE EVENT DATE: 2017
